FAERS Safety Report 12726358 (Version 1)
Quarter: 2016Q3

REPORT INFORMATION
  Report Type: Spontaneous
  Country: US (occurrence: US)
  Receive Date: 20160906
  Receipt Date: 20160906
  Transmission Date: 20161109
  Serious: No
  Sender: FDA-Public Use
  Company Number: None

PATIENT
  Age: 70 Year
  Sex: Male
  Weight: 67.5 kg

DRUGS (10)
  1. LISINOPRIL. [Concomitant]
     Active Substance: LISINOPRIL
  2. NIACIN ER [Concomitant]
     Active Substance: NIACIN
  3. MULTI-VITAMINS W/O MINERALS [Concomitant]
  4. CALCIUM [Concomitant]
     Active Substance: CALCIUM
  5. ZOLPIDEM [Concomitant]
     Active Substance: ZOLPIDEM\ZOLPIDEM TARTRATE
  6. PRILOSEC OTC [Concomitant]
     Active Substance: OMEPRAZOLE MAGNESIUM
  7. BABY ASPIRIN [Concomitant]
     Active Substance: ASPIRIN
  8. RAPAFLO [Concomitant]
     Active Substance: SILODOSIN
  9. SERTALINE [Suspect]
     Active Substance: SERTRALINE HYDROCHLORIDE
     Indication: INSOMNIA
     Route: 048
     Dates: start: 20160904, end: 20160906
  10. MAGNESIUM [Concomitant]
     Active Substance: MAGNESIUM

REACTIONS (2)
  - Sleep disorder [None]
  - Obsessive-compulsive disorder [None]

NARRATIVE: CASE EVENT DATE: 20160906
